FAERS Safety Report 14825715 (Version 1)
Quarter: 2018Q2

REPORT INFORMATION
  Report Type: Spontaneous
  Country: FR (occurrence: FR)
  Receive Date: 20180430
  Receipt Date: 20180430
  Transmission Date: 20180711
  Serious: Yes (Hospitalization)
  Sender: FDA-Public Use
  Company Number: FR-MERCK KGAA-2046795

PATIENT
  Age: 43 Year
  Sex: Female

DRUGS (2)
  1. NOVOTHYROX [Suspect]
     Active Substance: LEVOTHYROXINE SODIUM
     Indication: HYPOTHYROIDISM
     Dates: start: 201708
  2. LEVOTHYROXINE SODIUM. [Suspect]
     Active Substance: LEVOTHYROXINE SODIUM
     Dates: start: 201708

REACTIONS (11)
  - Weight increased [None]
  - Blood glucose increased [None]
  - Muscle spasms [None]
  - Headache [None]
  - Impaired work ability [None]
  - Fatigue [None]
  - Loss of personal independence in daily activities [None]
  - Alopecia [None]
  - Alcoholism [None]
  - Vertigo [None]
  - Depression [None]

NARRATIVE: CASE EVENT DATE: 201708
